FAERS Safety Report 6875873-3 (Version None)
Quarter: 2010Q3

REPORT INFORMATION
  Report Type: 
  Country: None (occurrence: None)
  Receive Date: 20100727
  Receipt Date: 20071203
  Transmission Date: 20110219
  Serious: Yes (Hospitalization, Other)
  Sender: FDA-Public Use
  Company Number: US-PFIZER INC-2006147027

PATIENT
  Sex: Male
  Weight: 72.6 kg

DRUGS (4)
  1. CELEBREX [Suspect]
     Indication: PAIN
     Route: 048
     Dates: start: 20000103, end: 20000921
  2. VIOXX [Suspect]
     Indication: PAIN
     Route: 048
     Dates: start: 19990901
  3. ATENOLOL [Concomitant]
     Indication: HYPERTENSION
     Dates: start: 19991025, end: 20050421
  4. PLAVIX [Concomitant]
     Indication: MYOCARDIAL INFARCTION
     Dates: start: 20000928, end: 20010630

REACTIONS (2)
  - CEREBROVASCULAR ACCIDENT [None]
  - MYOCARDIAL INFARCTION [None]
